FAERS Safety Report 10960665 (Version 1)
Quarter: 2015Q1

REPORT INFORMATION
  Report Type: Spontaneous
  Country: FR (occurrence: FR)
  Receive Date: 20150327
  Receipt Date: 20150327
  Transmission Date: 20150721
  Serious: Yes (Hospitalization)
  Sender: FDA-Public Use
  Company Number: FR-PFIZER INC-2015103298

PATIENT
  Age: 90 Year
  Sex: Female

DRUGS (1)
  1. TRIATEC [Suspect]
     Active Substance: RAMIPRIL
     Indication: HYPERTENSION
     Dosage: 2.5 MG, TWICE A DAY
     Route: 048
     Dates: start: 201406

REACTIONS (3)
  - Diffuse alopecia [Unknown]
  - Asthenia [Unknown]
  - Initial insomnia [Unknown]

NARRATIVE: CASE EVENT DATE: 201502
